FAERS Safety Report 5294509-9 (Version None)
Quarter: 2007Q2

REPORT INFORMATION
  Report Type: 
  Country: None (occurrence: None)
  Receive Date: 20070406
  Receipt Date: 20070326
  Transmission Date: 20071010
  Serious: Yes (Other)
  Sender: FDA-Public Use
  Company Number: 2007SP005697

PATIENT
  Age: 52 Year
  Sex: Male

DRUGS (2)
  1. PEG-INTRON [Suspect]
     Indication: HEPATITIS B
     Dosage: SC
     Route: 058
     Dates: start: 20070123
  2. RIBASPHERE [Suspect]
     Indication: HEPATITIS C
     Dosage: PO
     Route: 048
     Dates: start: 20070123

REACTIONS (13)
  - ABDOMINAL PAIN UPPER [None]
  - ARTHRITIS [None]
  - CHILLS [None]
  - CONDITION AGGRAVATED [None]
  - DEHYDRATION [None]
  - HYPERSOMNIA [None]
  - INFLUENZA LIKE ILLNESS [None]
  - INSOMNIA [None]
  - NIGHT SWEATS [None]
  - PYREXIA [None]
  - RED BLOOD CELL COUNT ABNORMAL [None]
  - REFUSAL OF TREATMENT BY PATIENT [None]
  - SKIN DISCOLOURATION [None]
